FAERS Safety Report 4938685-3 (Version None)
Quarter: 2006Q1

REPORT INFORMATION
  Report Type: 
  Country: None (occurrence: None)
  Receive Date: 20060127
  Receipt Date: 20051018
  Transmission Date: 20060701
  Serious: Yes (Other)
  Sender: FDA-Public Use
  Company Number: 2005145969

PATIENT
  Age: 75 Year
  Sex: Female
  Weight: 102.0593 kg

DRUGS (10)
  1. LYRICA [Suspect]
     Indication: DIABETIC NEUROPATHY
     Dosage: 150 MG (75 MG,2 IN 1 D)
     Dates: start: 20051012
  2. ATENOLOL [Concomitant]
  3. DIOVAN [Concomitant]
  4. LIPITOR [Concomitant]
  5. SYNTHROID [Concomitant]
  6. HUMALOG [Concomitant]
  7. LANTUS [Concomitant]
  8. WELLBUTRIN [Concomitant]
  9. RESTORIL [Concomitant]
  10. ACTOS [Concomitant]

REACTIONS (7)
  - DIZZINESS [None]
  - DYSARTHRIA [None]
  - FATIGUE [None]
  - HALLUCINATION, AUDITORY [None]
  - PARALYSIS [None]
  - THINKING ABNORMAL [None]
  - VISION BLURRED [None]
